FAERS Safety Report 17171448 (Version 1)
Quarter: 2019Q4

REPORT INFORMATION
  Report Type: Spontaneous
  Country: SE (occurrence: SE)
  Receive Date: 20191218
  Receipt Date: 20191218
  Transmission Date: 20200122
  Serious: Yes (Hospitalization)
  Sender: FDA-Public Use
  Company Number: SE-ELI_LILLY_AND_COMPANY-SE201912006910

PATIENT
  Age: 15 Year
  Sex: Female
  Weight: 95 kg

DRUGS (3)
  1. PROPAVAN [Suspect]
     Active Substance: PROPIOMAZINE
     Indication: PRODUCT USED FOR UNKNOWN INDICATION
     Dosage: 600 MG, UNKNOWN
     Route: 048
     Dates: start: 20190516, end: 20190516
  2. ATARAX [Suspect]
     Active Substance: HYDROXYZINE HYDROCHLORIDE
     Indication: PRODUCT USED FOR UNKNOWN INDICATION
     Dosage: 425 MG, UNKNOWN
     Route: 048
     Dates: start: 20190516, end: 20190516
  3. FLUOXETINE HYDROCHLORIDE. [Suspect]
     Active Substance: FLUOXETINE HYDROCHLORIDE
     Indication: PRODUCT USED FOR UNKNOWN INDICATION
     Dosage: 130 MG, UNKNOWN
     Route: 048
     Dates: start: 20190516, end: 20190516

REACTIONS (3)
  - Somnolence [Unknown]
  - Intentional self-injury [Unknown]
  - Intentional overdose [Unknown]

NARRATIVE: CASE EVENT DATE: 20190516
